FAERS Safety Report 6810975-9 (Version None)
Quarter: 2010Q2

REPORT INFORMATION
  Report Type: 
  Country: None (occurrence: None)
  Receive Date: 20100630
  Receipt Date: 20080917
  Transmission Date: 20101027
  Serious: No
  Sender: FDA-Public Use
  Company Number: US-PFIZER INC-2009166068

PATIENT
  Age: 50 Year
  Sex: Male

DRUGS (3)
  1. NICOTROL [Suspect]
  2. ANTIDEPRESSANTS [Concomitant]
     Indication: AGORAPHOBIA
  3. ANTIDEPRESSANTS [Concomitant]
     Indication: ANXIETY DISORDER

REACTIONS (9)
  - ASTHENIA [None]
  - DIARRHOEA [None]
  - FATIGUE [None]
  - HYPERHIDROSIS [None]
  - MALAISE [None]
  - MUSCULAR WEAKNESS [None]
  - TREMOR [None]
  - UNEVALUABLE EVENT [None]
  - WITHDRAWAL SYNDROME [None]
